FAERS Safety Report 11217087 (Version 1)
Quarter: 2015Q2

REPORT INFORMATION
  Report Type: Spontaneous
  Country: US (occurrence: US)
  Receive Date: 20150624
  Receipt Date: 20150624
  Transmission Date: 20150821
  Serious: Yes (Other)
  Sender: FDA-Public Use
  Company Number: US-PURDUE-USA-2015-0124452

PATIENT
  Sex: Male

DRUGS (2)
  1. NORCO [Concomitant]
     Active Substance: ACETAMINOPHEN\HYDROCODONE BITARTRATE
     Indication: PRODUCT USED FOR UNKNOWN INDICATION
     Dosage: UNK, PRN
     Route: 048
  2. MS CONTIN [Suspect]
     Active Substance: MORPHINE SULFATE
     Indication: PRODUCT USED FOR UNKNOWN INDICATION
     Route: 048

REACTIONS (10)
  - Back pain [Unknown]
  - Tachycardia [Unknown]
  - Oral mucosal eruption [Unknown]
  - Haematochezia [Unknown]
  - Pyrexia [Unknown]
  - Metastatic renal cell carcinoma [Unknown]
  - Fatigue [Unknown]
  - Rash [Unknown]
  - Hepatic enzyme abnormal [Unknown]
  - Metastases to bone [Unknown]
